FAERS Safety Report 22119392 (Version 2)
Quarter: 2023Q1

REPORT INFORMATION
  Report Type: Spontaneous
  Country: FR (occurrence: None)
  Receive Date: 20230321
  Receipt Date: 20230327
  Transmission Date: 20230418
  Serious: Yes (Life-Threatening, Other)
  Sender: FDA-Public Use
  Company Number: 2023A063172

PATIENT
  Age: 67 Year
  Sex: Male
  Weight: 78 kg

DRUGS (8)
  1. DIPRIVAN [Suspect]
     Active Substance: PROPOFOL
     Indication: Sedation
     Dosage: 1000 MG DAILY
     Route: 042
     Dates: start: 20230116, end: 20230215
  2. TICAGRELOR [Suspect]
     Active Substance: TICAGRELOR
     Indication: Ischaemic heart disease prophylaxis
     Dosage: 180 MG DAILY
     Route: 048
     Dates: start: 20230114, end: 20230130
  3. NICARDIPINE HYDROCHLORIDE [Suspect]
     Active Substance: NICARDIPINE HYDROCHLORIDE
     Indication: Hypertension
     Dosage: 50 MG DAILY
     Route: 042
     Dates: start: 20230122, end: 20230130
  4. URAPIDIL HYDROCHLORIDE [Suspect]
     Active Substance: URAPIDIL HYDROCHLORIDE
     Indication: Hypertension
     Dosage: 250 MG DAILY
     Route: 042
     Dates: start: 20230125, end: 20230130
  5. LOVENOX [Concomitant]
     Active Substance: ENOXAPARIN SODIUM
     Indication: Thrombosis prophylaxis
     Dosage: 4000 IU DAILY
     Route: 058
     Dates: start: 20230116, end: 20230130
  6. PANTOPRAZOLE [Concomitant]
     Active Substance: PANTOPRAZOLE
     Indication: Gastrooesophageal reflux disease
     Dosage: 40 MG DAILY
     Route: 042
     Dates: start: 20230116
  7. KARDEGIC [Concomitant]
     Active Substance: ASPIRIN DL-LYSINE
     Indication: Ischaemic heart disease prophylaxis
     Dosage: 75 MG DAILY
     Route: 048
     Dates: start: 20230114
  8. ACUPAN [Concomitant]
     Active Substance: NEFOPAM HYDROCHLORIDE
     Indication: Pain
     Dosage: 120 MG DAILY
     Route: 042
     Dates: start: 20230129, end: 20230201

REACTIONS (1)
  - Cardiac arrest [Recovered/Resolved]

NARRATIVE: CASE EVENT DATE: 20230129
